FAERS Safety Report 4652130-7 (Version None)
Quarter: 2005Q2

REPORT INFORMATION
  Report Type: 
  Country: None (occurrence: None)
  Receive Date: 20050502
  Receipt Date: 20050502
  Transmission Date: 20051028
  Serious: No
  Sender: FDA-Public Use
  Company Number: None

PATIENT
  Sex: Male
  Weight: 109.09 kg

DRUGS (2)
  1. MITOXANTRONE [Suspect]
     Indication: PROSTATE CANCER
     Dates: start: 20030815
  2. PREDNISONE TAB [Suspect]

REACTIONS (1)
  - MYOCARDIAL INFARCTION [None]
